FAERS Safety Report 8211511-5 (Version None)
Quarter: 2012Q1

REPORT INFORMATION
  Report Type: 
  Country: None (occurrence: None)
  Receive Date: 20120315
  Receipt Date: 20120306
  Transmission Date: 20120608
  Serious: Yes (Other)
  Sender: FDA-Public Use
  Company Number: FR-BRISTOL-MYERS SQUIBB COMPANY-16440356

PATIENT
  Age: 65 Year
  Sex: Female

DRUGS (6)
  1. CRESTOR [Concomitant]
     Dates: start: 20080903
  2. EMTRIVA [Concomitant]
     Dates: start: 20060228
  3. NORVIR [Concomitant]
     Dates: start: 20060228, end: 20120216
  4. REYATAZ [Suspect]
     Indication: HIV INFECTION
     Route: 048
     Dates: start: 20060228, end: 20120216
  5. ABACAVIR SULFATE/LAMIVUDINE [Concomitant]
     Dates: start: 20060228
  6. VIREAD [Concomitant]
     Dates: end: 20071010

REACTIONS (3)
  - LOW DENSITY LIPOPROTEIN INCREASED [None]
  - RENAL FAILURE [None]
  - NEPHROLITHIASIS [None]
